FAERS Safety Report 19841802 (Version 1)
Quarter: 2021Q3

REPORT INFORMATION
  Report Type: Spontaneous
  Country: AU (occurrence: AU)
  Receive Date: 20210915
  Receipt Date: 20210915
  Transmission Date: 20211014
  Serious: Yes (Hospitalization, Other)
  Sender: FDA-Public Use
  Company Number: AU-ABBVIE-21K-008-4076072-00

PATIENT
  Age: 35 Year
  Sex: Male
  Weight: 95 kg

DRUGS (11)
  1. CLOZAPINE. [Suspect]
     Active Substance: CLOZAPINE
     Route: 048
     Dates: start: 201704, end: 201704
  2. VENLAFAXINE HYDROCHLORIDE. [Suspect]
     Active Substance: VENLAFAXINE HYDROCHLORIDE
     Indication: DEPRESSION
     Route: 048
  3. CLOZAPINE. [Suspect]
     Active Substance: CLOZAPINE
     Route: 048
     Dates: start: 2017, end: 20170917
  4. CLOZAPINE. [Suspect]
     Active Substance: CLOZAPINE
     Route: 048
     Dates: start: 20170614
  5. CLOZAPINE. [Suspect]
     Active Substance: CLOZAPINE
     Route: 048
     Dates: start: 20180111
  6. CLOZAPINE. [Suspect]
     Active Substance: CLOZAPINE
     Indication: PRODUCT USED FOR UNKNOWN INDICATION
     Route: 048
  7. VENLAFAXINE HYDROCHLORIDE. [Suspect]
     Active Substance: VENLAFAXINE HYDROCHLORIDE
     Indication: SCHIZOPHRENIA
  8. GLICLAZIDE [Suspect]
     Active Substance: GLICLAZIDE
     Indication: PRODUCT USED FOR UNKNOWN INDICATION
     Route: 065
  9. VALPROATE SODIUM. [Suspect]
     Active Substance: VALPROATE SODIUM
     Indication: PRODUCT USED FOR UNKNOWN INDICATION
     Route: 048
  10. AMISULPRIDE [Suspect]
     Active Substance: AMISULPRIDE
     Indication: SCHIZOPHRENIA
     Route: 048
     Dates: start: 20170523, end: 20170917
  11. CLOZAPINE. [Suspect]
     Active Substance: CLOZAPINE
     Route: 048
     Dates: start: 20170426

REACTIONS (4)
  - Overdose [Unknown]
  - Drug level decreased [Unknown]
  - Schizophrenia [Recovering/Resolving]
  - Suicidal ideation [Recovering/Resolving]
